FAERS Safety Report 6329559-4 (Version None)
Quarter: 2009Q3

REPORT INFORMATION
  Report Type: 
  Country: None (occurrence: None)
  Receive Date: 20090824
  Receipt Date: 20090824
  Transmission Date: 20100115
  Serious: No
  Sender: FDA-Public Use
  Company Number: None

PATIENT
  Age: 13 Year
  Sex: Male
  Weight: 86.637 kg

DRUGS (1)
  1. MINOCYCLINE EXTENDED RELEASE 135MG BARR LABS [Suspect]
     Indication: ACNE
     Dosage: 135MG QD PO
     Route: 048
     Dates: start: 20090708, end: 20090821

REACTIONS (3)
  - ACNE [None]
  - PRODUCT QUALITY ISSUE [None]
  - PRODUCT SUBSTITUTION ISSUE [None]
